FAERS Safety Report 17224049 (Version 1)
Quarter: 2020Q1

REPORT INFORMATION
  Report Type: Spontaneous
  Country: US (occurrence: US)
  Receive Date: 20200102
  Receipt Date: 20200102
  Transmission Date: 20200409
  Serious: Yes (Death)
  Sender: FDA-Public Use
  Company Number: US-CHIESI USA, INC.-US-2019CHI000501

PATIENT

DRUGS (1)
  1. BETHKIS [Suspect]
     Active Substance: TOBRAMYCIN
     Indication: BRONCHIECTASIS
     Dosage: 1 DF, UNK
     Route: 055

REACTIONS (2)
  - Product use in unapproved indication [Fatal]
  - Death [Fatal]
